FAERS Safety Report 6437393-X (Version None)
Quarter: 2009Q4

REPORT INFORMATION
  Report Type: 
  Country: None (occurrence: None)
  Receive Date: 20091110
  Receipt Date: 20080204
  Transmission Date: 20100525
  Serious: No
  Sender: FDA-Public Use
  Company Number: AEUSA200700280

PATIENT
  Age: 48 Year
  Sex: Female
  Weight: 76.2043 kg

DRUGS (3)
  1. GAMUNEX [Suspect]
     Indication: PRIMARY IMMUNODEFICIENCY SYNDROME
     Dosage: 40 GM; Q3W; IV
     Route: 042
     Dates: start: 20071114
  2. VITAMINS [Concomitant]
  3. SOLU-MEDROL [Concomitant]

REACTIONS (7)
  - BLOOD IMMUNOGLOBULIN G DECREASED [None]
  - CHEST PAIN [None]
  - HEADACHE [None]
  - NAUSEA [None]
  - PAIN IN EXTREMITY [None]
  - PNEUMONIA [None]
  - WRONG TECHNIQUE IN DRUG USAGE PROCESS [None]
